FAERS Safety Report 8816910 (Version 1)
Quarter: 2012Q4

REPORT INFORMATION
  Report Type: Spontaneous
  Country: US (occurrence: None)
  Receive Date: 20121002
  Receipt Date: 20121002
  Transmission Date: 20130627
  Serious: Yes (Other)
  Sender: FDA-Public Use
  Company Number: None

PATIENT
  Age: 57 Year
  Sex: Female
  Weight: 66.68 kg

DRUGS (1)
  1. TRANSDERM SCOP [Suspect]
     Indication: MOTION SICKNESS
     Dosage: 1 patch every three days Transdermal
     Route: 062
     Dates: start: 20120916, end: 20120925

REACTIONS (6)
  - Nausea [None]
  - Vertigo [None]
  - Tremor [None]
  - Decreased appetite [None]
  - Vision blurred [None]
  - Dry mouth [None]
